FAERS Safety Report 12579457 (Version 4)
Quarter: 2017Q1

REPORT INFORMATION
  Report Type: Spontaneous
  Country: US (occurrence: US)
  Receive Date: 20160721
  Receipt Date: 20170127
  Transmission Date: 20170428
  Serious: Yes (Hospitalization)
  Sender: FDA-Public Use
  Company Number: US-PFIZER INC-2016352098

PATIENT
  Age: 63 Year
  Sex: Female
  Weight: 70.3 kg

DRUGS (3)
  1. XELJANZ [Suspect]
     Active Substance: TOFACITINIB CITRATE
     Dosage: 5 MG, 2X/DAY
  2. XELJANZ XR [Suspect]
     Active Substance: TOFACITINIB CITRATE
     Indication: RHEUMATOID ARTHRITIS
     Dosage: 11 MG, 1X/DAY [ONE EVERY MORNING]
     Route: 048
     Dates: start: 20160608
  3. LATANOPROST. [Concomitant]
     Active Substance: LATANOPROST
     Indication: INTRAOCULAR PRESSURE INCREASED
     Dosage: UNK

REACTIONS (22)
  - Ear pain [Unknown]
  - Haematocrit decreased [Unknown]
  - Red cell distribution width abnormal [Unknown]
  - Antiphospholipid antibodies negative [Unknown]
  - Lymphocyte count decreased [Unknown]
  - Gastric disorder [Unknown]
  - Cough [Not Recovered/Not Resolved]
  - Blood urea increased [Unknown]
  - Pyrexia [Not Recovered/Not Resolved]
  - Headache [Unknown]
  - Red blood cell count decreased [Unknown]
  - Blood sodium decreased [Unknown]
  - Blood triglycerides decreased [Unknown]
  - Drug ineffective [Unknown]
  - Nausea [Unknown]
  - Musculoskeletal stiffness [Unknown]
  - Haemoglobin decreased [Unknown]
  - Blood glucose increased [Unknown]
  - Oropharyngeal pain [Unknown]
  - Malaise [Unknown]
  - Fatigue [Unknown]
  - Feeling abnormal [Unknown]

NARRATIVE: CASE EVENT DATE: 20170102
